FAERS Safety Report 22269262 (Version 1)
Quarter: 2023Q2

REPORT INFORMATION
  Report Type: Spontaneous
  Country: US (occurrence: US)
  Receive Date: 20230501
  Receipt Date: 20230501
  Transmission Date: 20230721
  Serious: Yes (Death, Other)
  Sender: FDA-Public Use
  Company Number: US-SPECGX-T202301057

PATIENT
  Age: 3 Year
  Sex: Female

DRUGS (10)
  1. OXYCODONE [Suspect]
     Active Substance: OXYCODONE
     Indication: Product used for unknown indication
     Dosage: UNK
     Route: 065
  2. BACLOFEN [Suspect]
     Active Substance: BACLOFEN
     Indication: Product used for unknown indication
     Dosage: UNK
     Route: 065
  3. GABAPENTIN [Suspect]
     Active Substance: GABAPENTIN
     Indication: Product used for unknown indication
     Dosage: UNK
     Route: 065
  4. CLONIDINE [Suspect]
     Active Substance: CLONIDINE
     Indication: Product used for unknown indication
     Dosage: UNK
     Route: 065
  5. RISPERIDONE [Suspect]
     Active Substance: RISPERIDONE
     Indication: Product used for unknown indication
     Dosage: UNK
     Route: 065
  6. TRAZODONE [Suspect]
     Active Substance: TRAZODONE HYDROCHLORIDE
     Indication: Product used for unknown indication
     Dosage: UNK
     Route: 065
  7. ACETAMINOPHEN [Suspect]
     Active Substance: ACETAMINOPHEN
     Indication: Product used for unknown indication
     Dosage: UNK
     Route: 065
  8. KETAMINE [Suspect]
     Active Substance: KETAMINE
     Indication: Pain
     Dosage: UNK (0.5 MG/KG/HR)
     Route: 065
  9. KETAMINE [Suspect]
     Active Substance: KETAMINE
     Indication: Irritability
     Dosage: UNK (0.9 MG/KG/HR)
     Route: 065
  10. HALOPERIDOL [Suspect]
     Active Substance: HALOPERIDOL
     Indication: Adverse event
     Dosage: UNK
     Route: 065

REACTIONS (10)
  - Death [Fatal]
  - Nervous system disorder [Unknown]
  - Condition aggravated [Unknown]
  - Dystonia [Unknown]
  - Muscle twitching [Unknown]
  - Feeding intolerance [Unknown]
  - Pain [Unknown]
  - Inflammation [Unknown]
  - Agitation [Unknown]
  - Product use issue [Unknown]
